FAERS Safety Report 17016800 (Version 1)
Quarter: 2019Q4

REPORT INFORMATION
  Report Type: Spontaneous
  Country: GB (occurrence: GB)
  Receive Date: 20191111
  Receipt Date: 20191111
  Transmission Date: 20200122
  Serious: Yes (Hospitalization, Other)
  Sender: FDA-Public Use
  Company Number: GB-OTSUKA-2019_037883

PATIENT
  Age: 32 Year
  Sex: Female
  Weight: 96 kg

DRUGS (1)
  1. ARIPIPRAZOLE. [Suspect]
     Active Substance: ARIPIPRAZOLE
     Indication: BIPOLAR DISORDER
     Dosage: 15 MG
     Route: 048
     Dates: start: 20150401, end: 20181214

REACTIONS (5)
  - Tardive dyskinesia [Recovered/Resolved]
  - Withdrawal syndrome [Unknown]
  - Anger [Unknown]
  - Depressed mood [Unknown]
  - Seizure [Recovered/Resolved]

NARRATIVE: CASE EVENT DATE: 20180220
